FAERS Safety Report 6744488-X (Version None)
Quarter: 2010Q2

REPORT INFORMATION
  Report Type: 
  Country: None (occurrence: None)
  Receive Date: 20100527
  Receipt Date: 20100520
  Transmission Date: 20101027
  Serious: Yes (Other)
  Sender: FDA-Public Use
  Company Number: JP-BRISTOL-MYERS SQUIBB COMPANY-15117849

PATIENT
  Age: 65 Year
  Sex: Male

DRUGS (1)
  1. IRBETAN [Suspect]
     Indication: HYPERTENSION
     Dosage: TABS
     Route: 048
     Dates: start: 20100423

REACTIONS (2)
  - BLOOD TRIGLYCERIDES INCREASED [None]
  - GLYCOSYLATED HAEMOGLOBIN INCREASED [None]
